FAERS Safety Report 8943618 (Version 3)
Quarter: 2012Q4

REPORT INFORMATION
  Report Type: 
  Country: RO (occurrence: RO)
  Receive Date: 20121204
  Receipt Date: 20121214
  Transmission Date: 20130627
  Serious: Yes (Hospitalization)
  Sender: FDA-Public Use
  Company Number: RO-009507513-1211ROM012751

PATIENT
  Age: 51 Year
  Sex: Female

DRUGS (4)
  1. PEGINTRON [Suspect]
     Indication: CHRONIC HEPATITIS C
     Dosage: 100 Microgram, qw
     Route: 058
     Dates: start: 20120509, end: 20121116
  2. PEGINTRON [Suspect]
     Dosage: UNK
     Route: 065
     Dates: start: 20121121
  3. REBETOL [Suspect]
     Indication: CHRONIC HEPATITIS C
     Dosage: 800 mg, qd
     Route: 048
     Dates: start: 20120509, end: 20121116
  4. REBETOL [Suspect]
     Dosage: UNK
     Route: 065
     Dates: start: 20121121

REACTIONS (1)
  - Escherichia infection [Recovered/Resolved]
